FAERS Safety Report 4811108-0 (Version None)
Quarter: 2005Q4

REPORT INFORMATION
  Report Type: 
  Country: None (occurrence: None)
  Receive Date: 20051025
  Receipt Date: 20051010
  Transmission Date: 20060501
  Serious: Yes (Other)
  Sender: FDA-Public Use
  Company Number: 2005S1009985

PATIENT
  Age: 6 Year
  Sex: Female

DRUGS (8)
  1. MERCAPTAMINE BITARTRATE (MERCAPTAMINE BITARTRATE) (150 MG) [Suspect]
     Indication: CYSTINOSIS
     Dosage: 90 MG/KG; QD; ORAL
     Route: 048
     Dates: start: 20010710
  2. INDOMETHACIN [Concomitant]
  3. OMEPRAZOLE [Concomitant]
  4. POTASSIUM [Concomitant]
  5. SODIUM BICARBONATE [Concomitant]
  6. ERGOCALCIFEROL [Concomitant]
  7. CARNITINE [Concomitant]
  8. SODIUM BICARBONATE/POTASSIUM BICARBONATE/SODIUM PHOSPHATE MONOBASIC (A [Concomitant]

REACTIONS (5)
  - ARTHRALGIA [None]
  - FEMUR FRACTURE [None]
  - INJURY [None]
  - OSTEOPENIA [None]
  - SHOULDER PAIN [None]
